FAERS Safety Report 7002666-9 (Version None)
Quarter: 2010Q3

REPORT INFORMATION
  Report Type: 
  Country: None (occurrence: None)
  Receive Date: 20100920
  Receipt Date: 20100907
  Transmission Date: 20110219
  Serious: Yes (Hospitalization)
  Sender: FDA-Public Use
  Company Number: US-ELI_LILLY_AND_COMPANY-US201006002935

PATIENT
  Sex: Female
  Weight: 82.993 kg

DRUGS (24)
  1. SOMATROPIN [Suspect]
     Indication: LYMPHOCYTIC HYPOPHYSITIS
     Dosage: 0.4 MG, DAILY (1/D)
     Route: 058
  2. SOMATROPIN [Suspect]
     Dosage: 0.35 MG, UNK
     Dates: start: 20100608
  3. POLYGAM S/D [Concomitant]
     Dosage: 35 G, 4/W
     Route: 042
     Dates: start: 20080102
  4. EVOXAC [Concomitant]
     Dosage: 30 MG, 3/D
  5. AVAPRO [Concomitant]
     Dosage: 300 MG, DAILY (1/D)
  6. HYDROCHLOROTHIAZIDE [Concomitant]
     Dosage: 25 MG, DAILY (1/D)
  7. PROTONIX [Concomitant]
     Dosage: 40 MG, 2/D
  8. ZANTAC [Concomitant]
     Dosage: 300 MG, AS NEEDED
  9. SYNTHROID [Concomitant]
     Dosage: 75 MG, OTHER
  10. SYNTHROID [Concomitant]
     Dosage: 50 MG, OTHER
  11. CELEBREX [Concomitant]
     Dosage: 200 MG, DAILY (1/D)
  12. VITAMIN D [Concomitant]
     Dosage: 50000 U, OTHER
  13. ASPIRIN [Concomitant]
     Dosage: 81 MG, DAILY (1/D)
  14. TRICOR [Concomitant]
     Dosage: 145 MG, EACH EVENING
     Dates: start: 20051125
  15. CYMBALTA [Concomitant]
     Dosage: 60 MG, DAILY (1/D)
     Dates: start: 20060315
  16. LIDODERM [Concomitant]
     Dates: start: 20050725
  17. VAGIFEM [Concomitant]
     Dates: start: 20060317
  18. LYRICA [Concomitant]
     Dosage: 75 MG, UNK
     Dates: start: 20060920
  19. LYRICA [Concomitant]
     Dosage: 100 MG, UNK
     Dates: start: 20070929
  20. METENIX 5 [Concomitant]
     Dates: start: 20061120
  21. DITROPAN XL [Concomitant]
     Dosage: 5 MG, DAILY (1/D)
     Dates: start: 20090227
  22. FERROUS SULFATE [Concomitant]
     Dosage: 325 MG, UNK
  23. OPANA [Concomitant]
     Dosage: 5 MG, AS NEEDED
  24. VITAMIN E [Concomitant]
     Dosage: 400 U, AS NEEDED

REACTIONS (2)
  - OSTEOARTHRITIS [None]
  - TENDON RUPTURE [None]
